FAERS Safety Report 4836390-5 (Version None)
Quarter: 2005Q4

REPORT INFORMATION
  Report Type: 
  Country: None (occurrence: None)
  Receive Date: 20051123
  Receipt Date: 20051121
  Transmission Date: 20060501
  Serious: Yes (Other)
  Sender: FDA-Public Use
  Company Number: PT-ROCHE-425582

PATIENT
  Age: 57 Year
  Sex: Female
  Weight: 91.6 kg

DRUGS (7)
  1. XENICAL [Suspect]
     Indication: DRUG USE FOR UNKNOWN INDICATION
     Route: 065
  2. FLUOXETINE [Concomitant]
     Dosage: DRUG NAME REPORTED AS PSIPAX
  3. BROMALEX [Concomitant]
  4. TRAZODONE HCL [Concomitant]
     Dosage: DRUG NAME REPORTED AS TRITICUM
  5. CELEBREX [Concomitant]
  6. OMEPRAZOLE [Concomitant]
  7. GUTTALAX [Concomitant]

REACTIONS (2)
  - CONSTIPATION [None]
  - FLATULENCE [None]
